FAERS Safety Report 5221757-6 (Version None)
Quarter: 2007Q1

REPORT INFORMATION
  Report Type: 
  Country: None (occurrence: None)
  Receive Date: 20070129
  Receipt Date: 20070112
  Transmission Date: 20070707
  Serious: Yes (Hospitalization, Disabling, Other)
  Sender: FDA-Public Use
  Company Number: US-JNJFOC-20070103307

PATIENT
  Age: 46 Year
  Sex: Male

DRUGS (4)
  1. FENTANYL [Suspect]
     Indication: DRUG ABUSER
     Route: 048
  2. ANTIHYPERLIPIDEMIC [Suspect]
     Indication: DRUG USE FOR UNKNOWN INDICATION
  3. ACE INHIBITOR [Concomitant]
     Indication: DRUG USE FOR UNKNOWN INDICATION
  4. SELECTIVE SEROTONIN REUPTAKE INHIBITOR [Concomitant]
     Indication: DRUG USE FOR UNKNOWN INDICATION

REACTIONS (16)
  - ANOXIC ENCEPHALOPATHY [None]
  - BLOOD ALBUMIN DECREASED [None]
  - BLOOD CHLORIDE DECREASED [None]
  - BLOOD CREATINE INCREASED [None]
  - BLOOD POTASSIUM INCREASED [None]
  - BLOOD PRESSURE DECREASED [None]
  - BLOOD SODIUM DECREASED [None]
  - CONFUSIONAL STATE [None]
  - DRUG ABUSER [None]
  - DRUG DEPENDENCE [None]
  - GLASGOW COMA SCALE ABNORMAL [None]
  - MIOSIS [None]
  - RESTLESSNESS [None]
  - RHABDOMYOLYSIS [None]
  - SUPRAVENTRICULAR TACHYCARDIA [None]
  - TACHYCARDIA [None]
